FAERS Safety Report 24286578 (Version 2)
Quarter: 2024Q3

REPORT INFORMATION
  Report Type: Report from Study
  Country: PL (occurrence: PL)
  Receive Date: 20240905
  Receipt Date: 20240920
  Transmission Date: 20241017
  Serious: Yes (Life-Threatening, Hospitalization, Other)
  Sender: TEVA
  Company Number: PL-TEVA-VS-3238306

PATIENT
  Age: 14 Year
  Sex: Female

DRUGS (15)
  1. POSACONAZOLE [Suspect]
     Active Substance: POSACONAZOLE
     Indication: Antifungal prophylaxis
     Route: 065
  2. MITOXANTRONE [Suspect]
     Active Substance: MITOXANTRONE HYDROCHLORIDE
     Indication: Acute myeloid leukaemia
     Dosage: AS A PART OF AML-BFM-2019 CHEMOTHERAPY REGIMEN
     Route: 065
  3. GEMTUZUMAB OZOGAMICIN [Suspect]
     Active Substance: GEMTUZUMAB OZOGAMICIN
     Indication: Acute myeloid leukaemia
     Dosage: AS A PART OF AML-BFM-2019 CHEMOTHERAPY REGIMEN
     Route: 065
  4. THIOGUANINE [Suspect]
     Active Substance: THIOGUANINE
     Indication: Acute myeloid leukaemia
     Dosage: AS A PART OF AML-BFM-2019 CHEMOTHERAPY REGIMEN
     Route: 065
  5. CLOFARABINE [Suspect]
     Active Substance: CLOFARABINE
     Indication: Acute myeloid leukaemia
     Dosage: AS A PART OF AML-BFM-2019 CHEMOTHERAPY REGIMEN
     Route: 065
  6. TRETINOIN [Suspect]
     Active Substance: TRETINOIN
     Indication: Acute myeloid leukaemia
     Dosage: AS A PART OF AML-BFM-2019 CHEMOTHERAPY REGIMEN
     Route: 065
  7. ETOPOSIDE [Suspect]
     Active Substance: ETOPOSIDE
     Indication: Acute myeloid leukaemia
     Dosage: AS A PART OF AML-BFM-2019 CHEMOTHERAPY REGIMEN
     Route: 065
  8. CYTARABINE [Suspect]
     Active Substance: CYTARABINE
     Indication: Acute myeloid leukaemia
     Dosage: AS A PART OF IDA-FLA IN AML-BFM-2019 CHEMOTHERAPY REGIMEN
     Route: 065
  9. CYTARABINE [Suspect]
     Active Substance: CYTARABINE
     Indication: Acute myeloid leukaemia
     Dosage: AS A PART OF AML-BFM-2019 CHEMOTHERAPY REGIMEN
     Route: 065
  10. CYTARABINE [Suspect]
     Active Substance: CYTARABINE
     Indication: Acute myeloid leukaemia
     Dosage: AS A PART OF FLA REGIMEN IN AML-BFM-2019 CHEMOTHERAPY REGIMEN
     Route: 065
  11. FLUDARABINE [Suspect]
     Active Substance: FLUDARABINE PHOSPHATE
     Indication: Acute myeloid leukaemia
     Dosage: AS A PART OF AML-BFM-2019 CHEMOTHERAPY REGIMEN
     Route: 065
  12. FLUDARABINE [Suspect]
     Active Substance: FLUDARABINE PHOSPHATE
     Indication: Acute myeloid leukaemia
     Dosage: AS A PART OF IDA-FLA REGIMEN
     Route: 065
  13. FLUDARABINE [Suspect]
     Active Substance: FLUDARABINE PHOSPHATE
     Indication: Acute myeloid leukaemia
     Dosage: AS A PART OF FLA REGIMEN
     Route: 065
  14. IDARUBICIN [Suspect]
     Active Substance: IDARUBICIN
     Indication: Acute myeloid leukaemia
     Dosage: AS A PART OF AML-BFM-2019 CHEMOTHERAPY REGIMEN
     Route: 065
  15. IDARUBICIN [Suspect]
     Active Substance: IDARUBICIN
     Indication: Acute myeloid leukaemia
     Dosage: AS A PART OF IDA-FLA REGIMEN IN AML-BFM-2019 CHEMOTHERAPY REGIMEN
     Route: 065

REACTIONS (7)
  - Drug ineffective [Unknown]
  - Fusarium infection [Unknown]
  - Proteus infection [Unknown]
  - Gastrointestinal infection [Unknown]
  - Clostridium difficile infection [Unknown]
  - Stomatitis [Unknown]
  - Sepsis [Unknown]
